FAERS Safety Report 7578820-4 (Version None)
Quarter: 2011Q2

REPORT INFORMATION
  Report Type: 
  Country: None (occurrence: None)
  Receive Date: 20110628
  Receipt Date: 20100815
  Transmission Date: 20111010
  Serious: Yes (Hospitalization, Other)
  Sender: FDA-Public Use
  Company Number: IL-ROCHE-777093

PATIENT
  Age: 71 Year
  Sex: Female
  Weight: 69 kg

DRUGS (9)
  1. AVASTIN [Suspect]
     Route: 065
     Dates: start: 20070101, end: 20080101
  2. LEUCOVORIN CALCIUM [Concomitant]
     Dosage: FOR 10 CYCLES, 2ND LINE THERAPY
  3. FLUOROURACIL [Concomitant]
     Dosage: CONTINUED BOLUS 4200 MG FOR 10 CYCLES, 2ND LINE THERAPY
     Dates: start: 20081208, end: 20090501
  4. FLUOROURACIL [Concomitant]
     Dosage: FOR 16 CYCLES, 3RD LINE THERAPY
     Dates: start: 20091101, end: 20100601
  5. LEUCOVORIN CALCIUM [Concomitant]
  6. IRINOTECAN HYDROCHLORIDE [Concomitant]
  7. FLUOROURACIL [Concomitant]
     Dosage: AS CONTINUING BOLUS FOR 16 CYCLES.
  8. FLUOROURACIL [Concomitant]
  9. OXALIPLATIN [Concomitant]
     Dosage: START  DATE REPORTED AS SECOND LINE,FOR 10 CYCLES.

REACTIONS (11)
  - DISEASE PROGRESSION [None]
  - ABDOMINAL PAIN [None]
  - DIARRHOEA [None]
  - HAEMOLYTIC ANAEMIA [None]
  - WOUND [None]
  - LEUKOPENIA [None]
  - GENERAL PHYSICAL HEALTH DETERIORATION [None]
  - ANAEMIA [None]
  - WEIGHT DECREASED [None]
  - RENAL FAILURE ACUTE [None]
  - DEEP VEIN THROMBOSIS [None]
